FAERS Safety Report 15492841 (Version 6)
Quarter: 2019Q1

REPORT INFORMATION
  Report Type: Spontaneous
  Country: JP (occurrence: JP)
  Receive Date: 20181012
  Receipt Date: 20190329
  Transmission Date: 20190417
  Serious: Yes (Life-Threatening, Hospitalization, Other)
  Sender: FDA-Public Use
  Company Number: JP-CELGENEUS-JPN-20181002025

PATIENT
  Age: 76 Year
  Sex: Male
  Weight: 60 kg

DRUGS (83)
  1. POLAPREZINC [Concomitant]
     Active Substance: POLAPREZINC
     Indication: CHRONIC GASTRITIS
     Dosage: 150 MILLIGRAM
     Route: 065
     Dates: start: 20180801
  2. CASPOFUNGIN ACETATE. [Concomitant]
     Active Substance: CASPOFUNGIN ACETATE
     Indication: BRONCHOPULMONARY ASPERGILLOSIS
     Dosage: 50 MILLIGRAM
     Route: 065
     Dates: start: 20180804, end: 20180930
  3. SODIUM CHLORIDE. [Concomitant]
     Active Substance: SODIUM CHLORIDE
     Dosage: 200 MILLILITER
     Route: 065
     Dates: start: 20180805
  4. SODIUM CHLORIDE. [Concomitant]
     Active Substance: SODIUM CHLORIDE
     Dosage: 100 MILLILITER
     Route: 065
     Dates: start: 20180805
  5. DIBASIC SODIUM PHOSPHATE HYDRATE/SODIUM DIHYDROGEN [Concomitant]
     Dosage: 80 MILLIGRAM
     Route: 065
     Dates: start: 20180827, end: 20180902
  6. DIBASIC SODIUM PHOSPHATE HYDRATE/SODIUM DIHYDROGEN [Concomitant]
     Dosage: 120 MILLILITER
     Route: 065
     Dates: start: 20180917, end: 20180917
  7. ACETAMINOPHEN. [Concomitant]
     Active Substance: ACETAMINOPHEN
     Dosage: 800 MILLIGRAM
     Route: 065
     Dates: start: 20180920, end: 20180920
  8. CARBOCISTEINE [Concomitant]
     Active Substance: CARBOCYSTEINE
     Indication: NASOPHARYNGITIS
     Dosage: 1500 MILLIGRAM
     Route: 065
     Dates: start: 20180930
  9. NOVOLIN [Concomitant]
     Active Substance: INSULIN HUMAN
     Indication: HYPERGLYCAEMIA
     Route: 065
     Dates: start: 20181206, end: 20181206
  10. VENETOCLAX. [Concomitant]
     Active Substance: VENETOCLAX
     Indication: ACUTE MYELOID LEUKAEMIA
     Dosage: 1 DOSAGE FORMS
     Route: 048
     Dates: start: 20180731, end: 20180731
  11. AZELNIDIPINE [Concomitant]
     Active Substance: AZELNIDIPINE
     Indication: HYPERTENSION
     Dosage: 16 MILLIGRAM
     Route: 065
     Dates: start: 20180730
  12. CALCIUM GLUCONATE. [Concomitant]
     Active Substance: CALCIUM GLUCONATE
     Dosage: 15 MILLILITER
     Route: 065
     Dates: start: 20180816
  13. DIBASIC SODIUM PHOSPHATE HYDRATE/SODIUM DIHYDROGEN [Concomitant]
     Indication: HYPOPHOSPHATAEMIA
     Dosage: 20 MILLILITER
     Route: 065
     Dates: start: 20180806, end: 20180816
  14. DIBASIC SODIUM PHOSPHATE HYDRATE/SODIUM DIHYDROGEN [Concomitant]
     Dosage: 120 MILLILITER
     Route: 065
     Dates: start: 20180906, end: 20180906
  15. DIBASIC SODIUM PHOSPHATE HYDRATE/SODIUM DIHYDROGEN [Concomitant]
     Dosage: 100 MILLILITER
     Route: 065
     Dates: start: 20180907, end: 20180909
  16. DIBASIC SODIUM PHOSPHATE HYDRATE/SODIUM DIHYDROGEN [Concomitant]
     Dosage: 80 MILLILITER
     Route: 065
     Dates: start: 20180916, end: 20180916
  17. DIBASIC SODIUM PHOSPHATE HYDRATE/SODIUM DIHYDROGEN [Concomitant]
     Dosage: 140 MILLILITER
     Route: 065
     Dates: start: 20180928, end: 20180928
  18. DIBASIC SODIUM PHOSPHATE HYDRATE/SODIUM DIHYDROGEN [Concomitant]
     Dosage: 120 MILLILITER
     Route: 065
     Dates: start: 20180930, end: 20180930
  19. ACETAMINOPHEN. [Concomitant]
     Active Substance: ACETAMINOPHEN
     Dosage: 400 MILLIGRAM
     Route: 065
     Dates: start: 20180919, end: 20180919
  20. ACETAMINOPHEN. [Concomitant]
     Active Substance: ACETAMINOPHEN
     Dosage: 800 MILLIGRAM
     Route: 065
     Dates: start: 20181206, end: 20181207
  21. ACETAMINOPHEN. [Concomitant]
     Active Substance: ACETAMINOPHEN
     Dosage: 800 MILLIGRAM
     Route: 065
     Dates: start: 20181209
  22. LEVOFLOXACIN HEMIHYDRATE [Concomitant]
     Active Substance: LEVOFLOXACIN
     Indication: PROPHYLAXIS
     Dosage: 500 MILLIGRAM
     Route: 065
     Dates: start: 20180914
  23. TAZOBACTAM SODIUM AND PIPERACILLIN SODIUM [Concomitant]
     Active Substance: PIPERACILLIN SODIUM\TAZOBACTAM SODIUM
     Indication: FEBRILE NEUTROPENIA
     Dosage: 4.5 GRAM
     Route: 065
     Dates: start: 20180731, end: 20180731
  24. TAZOBACTAM SODIUM AND PIPERACILLIN SODIUM [Concomitant]
     Active Substance: PIPERACILLIN SODIUM\TAZOBACTAM SODIUM
     Dosage: 13.5 GRAM
     Route: 065
     Dates: start: 20180915, end: 20180919
  25. HEPARIN SODIUM. [Concomitant]
     Active Substance: HEPARIN SODIUM
     Indication: COAGULOPATHY
     Dosage: 10 MILLILITER
     Route: 065
     Dates: start: 20180805
  26. DIBASIC SODIUM PHOSPHATE HYDRATE/SODIUM DIHYDROGEN [Concomitant]
     Dosage: 40 MILLIGRAM
     Route: 065
     Dates: start: 20180808, end: 20180808
  27. DIBASIC SODIUM PHOSPHATE HYDRATE/SODIUM DIHYDROGEN [Concomitant]
     Dosage: 100 MILLILITER
     Route: 065
     Dates: start: 20180903, end: 20180905
  28. DIBASIC SODIUM PHOSPHATE HYDRATE/SODIUM DIHYDROGEN [Concomitant]
     Dosage: 160 MILLILITER
     Route: 065
     Dates: start: 20181007, end: 20181008
  29. ACETAMINOPHEN. [Concomitant]
     Active Substance: ACETAMINOPHEN
     Dosage: 1200 MILLIGRAM
     Route: 065
     Dates: start: 20181004, end: 20181004
  30. ACETAMINOPHEN. [Concomitant]
     Active Substance: ACETAMINOPHEN
     Dosage: 800 MILLIGRAM
     Route: 065
     Dates: start: 20181007, end: 20181007
  31. AMIPAREN [Concomitant]
     Active Substance: AMINO ACIDS
     Dosage: 400 MILLILITER
     Route: 065
     Dates: start: 20181209
  32. FEBUXOSTAT. [Concomitant]
     Active Substance: FEBUXOSTAT
     Dosage: 20 MILLIGRAM
     Route: 065
     Dates: start: 20180816
  33. SOLDEM 3A [Concomitant]
     Active Substance: CARBOHYDRATES\POTASSIUM CHLORIDE\SODIUM CHLORIDE\SODIUM LACTATE
     Indication: PROPHYLAXIS
     Route: 065
     Dates: start: 20180730
  34. DIBASIC SODIUM PHOSPHATE HYDRATE/SODIUM DIHYDROGEN [Concomitant]
     Dosage: 60 MILLILITER
     Route: 065
     Dates: start: 20180810, end: 20180817
  35. DIBASIC SODIUM PHOSPHATE HYDRATE/SODIUM DIHYDROGEN [Concomitant]
     Dosage: 60 MILLILITER
     Route: 065
     Dates: start: 20180824, end: 20180826
  36. DIBASIC SODIUM PHOSPHATE HYDRATE/SODIUM DIHYDROGEN [Concomitant]
     Dosage: 80 MILLILITER
     Route: 065
     Dates: start: 20180910, end: 20180915
  37. DIBASIC SODIUM PHOSPHATE HYDRATE/SODIUM DIHYDROGEN [Concomitant]
     Dosage: 140 MILLILITER
     Route: 065
     Dates: start: 20181002, end: 20181002
  38. DIBASIC SODIUM PHOSPHATE HYDRATE/SODIUM DIHYDROGEN [Concomitant]
     Dosage: 140 MILLILITER
     Route: 065
     Dates: start: 20181009, end: 20181013
  39. ACETAMINOPHEN. [Concomitant]
     Active Substance: ACETAMINOPHEN
     Dosage: 800 MILLIGRAM
     Route: 065
     Dates: start: 20180915, end: 20180915
  40. ACETAMINOPHEN. [Concomitant]
     Active Substance: ACETAMINOPHEN
     Dosage: 800 MILLIGRAM
     Route: 065
     Dates: start: 20180929, end: 20180930
  41. FEBUXOSTAT. [Concomitant]
     Active Substance: FEBUXOSTAT
     Indication: PROPHYLAXIS
     Dosage: 60 MILLIGRAM
     Route: 065
     Dates: start: 20180728, end: 20180815
  42. ZOLPIDEM TARTRATE. [Concomitant]
     Active Substance: ZOLPIDEM TARTRATE
     Indication: INSOMNIA
     Dosage: 10 MILLIGRAM
     Route: 065
     Dates: start: 20180801, end: 20181015
  43. MAGNESIUM OXIDE. [Concomitant]
     Active Substance: MAGNESIUM OXIDE
     Dosage: 1500 MILLIGRAM
     Route: 065
     Dates: start: 20180823
  44. DIBASIC SODIUM PHOSPHATE HYDRATE/SODIUM DIHYDROGEN [Concomitant]
     Dosage: 120 MILLILITER
     Route: 065
     Dates: start: 20181001, end: 20181001
  45. ACETAMINOPHEN. [Concomitant]
     Active Substance: ACETAMINOPHEN
     Dosage: 400 MILLIGRAM
     Route: 065
     Dates: start: 20180928, end: 20180928
  46. HEPARINOID [Concomitant]
     Active Substance: CHONDROITIN SULFATE (BOVINE)
     Indication: DRY SKIN
     Route: 065
     Dates: start: 20180912
  47. TRAZODONE [Concomitant]
     Active Substance: TRAZODONE HYDROCHLORIDE
     Indication: INSOMNIA
     Dosage: 25 MILLIGRAM
     Route: 065
     Dates: start: 20181016
  48. VIDAZA [Suspect]
     Active Substance: AZACITIDINE
     Indication: ACUTE MYELOID LEUKAEMIA
     Dosage: 75 MILLIGRAM/SQ. METER
     Route: 041
     Dates: start: 20180731, end: 201811
  49. VENETOCLAX. [Concomitant]
     Active Substance: VENETOCLAX
     Dosage: 1 DOSAGE FORMS
     Route: 048
     Dates: start: 20180802, end: 20180921
  50. REBAMIPIDE [Concomitant]
     Active Substance: REBAMIPIDE
     Indication: CHRONIC GASTRITIS
     Dosage: 300 MILLIGRAM
     Route: 065
     Dates: start: 20180801
  51. DIBASIC SODIUM PHOSPHATE HYDRATE/SODIUM DIHYDROGEN [Concomitant]
     Dosage: 60 MILLILITER
     Route: 065
     Dates: start: 20180818, end: 20180818
  52. DIBASIC SODIUM PHOSPHATE HYDRATE/SODIUM DIHYDROGEN [Concomitant]
     Dosage: 80 MILLILITER
     Route: 065
     Dates: start: 20180918, end: 20180921
  53. DIBASIC SODIUM PHOSPHATE HYDRATE/SODIUM DIHYDROGEN [Concomitant]
     Dosage: 80 MILLILITER
     Route: 065
     Dates: start: 20180927, end: 20180927
  54. DIBASIC SODIUM PHOSPHATE HYDRATE/SODIUM DIHYDROGEN [Concomitant]
     Dosage: 160 MILLILITER
     Route: 065
     Dates: start: 20181003, end: 20181005
  55. ACETAMINOPHEN. [Concomitant]
     Active Substance: ACETAMINOPHEN
     Dosage: 800 MILLIGRAM
     Route: 065
     Dates: start: 20180905, end: 20180906
  56. DIMETICONE [Concomitant]
     Active Substance: DIMETHICONE
     Indication: CHRONIC GASTRITIS
     Dosage: 120 MILLIGRAM
     Route: 065
     Dates: start: 20180907, end: 20181003
  57. AMIPAREN [Concomitant]
     Active Substance: AMINO ACIDS
     Indication: NEUTROPENIC COLITIS
     Dosage: 200 MILLILITER
     Route: 065
     Dates: start: 20181206, end: 20181208
  58. MEDLENIK [Concomitant]
     Active Substance: CUPRIC SULFATE\FERRIC CHLORIDE\MANGANESE CHLORIDE\POTASSIUM IODIDE\ZINC SULFATE
     Indication: NEUTROPENIC COLITIS
     Dosage: 2 MILLILITER
     Route: 065
     Dates: start: 20181206
  59. VIDAZA [Suspect]
     Active Substance: AZACITIDINE
     Dosage: 75 MILLIGRAM/SQ. METER
     Route: 041
     Dates: start: 20181112
  60. VENETOCLAX. [Concomitant]
     Active Substance: VENETOCLAX
     Dosage: 1 DOSAGE FORMS
     Route: 048
     Dates: start: 20181112, end: 20181206
  61. LANSOPRAZOLE. [Concomitant]
     Active Substance: LANSOPRAZOLE
     Indication: CHRONIC GASTRITIS
     Dosage: 30 MILLIGRAM
     Route: 065
     Dates: start: 20180801
  62. TAZOBACTAM SODIUM AND PIPERACILLIN SODIUM [Concomitant]
     Active Substance: PIPERACILLIN SODIUM\TAZOBACTAM SODIUM
     Dosage: 18 GRAM
     Route: 065
     Dates: start: 20180801, end: 20180831
  63. TAZOBACTAM SODIUM AND PIPERACILLIN SODIUM [Concomitant]
     Active Substance: PIPERACILLIN SODIUM\TAZOBACTAM SODIUM
     Dosage: 4.5 GRAM
     Route: 065
     Dates: start: 20180920, end: 20180920
  64. MAGNESIUM OXIDE. [Concomitant]
     Active Substance: MAGNESIUM OXIDE
     Indication: CONSTIPATION
     Dosage: 500 MILLIGRAM
     Route: 065
     Dates: start: 20180803, end: 20180822
  65. DIBASIC SODIUM PHOSPHATE HYDRATE/SODIUM DIHYDROGEN [Concomitant]
     Dosage: 80 MILLILITER
     Route: 065
     Dates: start: 20180923, end: 20180925
  66. DIBASIC SODIUM PHOSPHATE HYDRATE/SODIUM DIHYDROGEN [Concomitant]
     Dosage: 140 MILLILITER
     Route: 065
     Dates: start: 20181006, end: 20181006
  67. ACETAMINOPHEN. [Concomitant]
     Active Substance: ACETAMINOPHEN
     Indication: FEBRILE NEUTROPENIA
     Dosage: 400 MILLIGRAM
     Route: 065
     Dates: start: 20180904, end: 20180904
  68. ACETAMINOPHEN. [Concomitant]
     Active Substance: ACETAMINOPHEN
     Dosage: 400 MILLIGRAM
     Route: 065
     Dates: start: 20180921, end: 20180921
  69. VENETOCLAX. [Concomitant]
     Active Substance: VENETOCLAX
     Dosage: 1 DOSAGE FORMS
     Route: 048
     Dates: start: 20180801, end: 20180801
  70. MOSAPRIDE CITRATE [Concomitant]
     Active Substance: MOSAPRIDE CITRATE
     Indication: CHRONIC GASTRITIS
     Dosage: 15 MILLIGRAM
     Route: 065
     Dates: start: 2015
  71. CALCIUM GLUCONATE. [Concomitant]
     Active Substance: CALCIUM GLUCONATE
     Indication: HYPOCALCAEMIA
     Dosage: 15 MILLILITER
     Route: 065
     Dates: start: 20180730, end: 20180730
  72. CALCIUM GLUCONATE. [Concomitant]
     Active Substance: CALCIUM GLUCONATE
     Dosage: 15 MILLILITER
     Route: 065
     Dates: start: 20180806, end: 20180806
  73. CALCIUM GLUCONATE. [Concomitant]
     Active Substance: CALCIUM GLUCONATE
     Dosage: 15 MILLILITER
     Route: 065
     Dates: start: 20180813, end: 20180813
  74. TAZOBACTAM SODIUM AND PIPERACILLIN SODIUM [Concomitant]
     Active Substance: PIPERACILLIN SODIUM\TAZOBACTAM SODIUM
     Dosage: 9 GRAM
     Route: 065
     Dates: start: 20180914, end: 20180914
  75. SODIUM CHLORIDE. [Concomitant]
     Active Substance: SODIUM CHLORIDE
     Indication: FLUID REPLACEMENT
     Dosage: 250 MILLILITER
     Route: 065
     Dates: start: 20180804
  76. SODIUM CHLORIDE. [Concomitant]
     Active Substance: SODIUM CHLORIDE
     Dosage: 20 MILLILITER
     Route: 065
     Dates: start: 20180805
  77. DIBASIC SODIUM PHOSPHATE HYDRATE/SODIUM DIHYDROGEN [Concomitant]
     Dosage: 80 MILLILITER
     Route: 065
     Dates: start: 20180819, end: 20180823
  78. DIBASIC SODIUM PHOSPHATE HYDRATE/SODIUM DIHYDROGEN [Concomitant]
     Dosage: 180 MILLILITER
     Route: 065
     Dates: start: 20181014
  79. ACETAMINOPHEN. [Concomitant]
     Active Substance: ACETAMINOPHEN
     Dosage: 400 MILLIGRAM
     Route: 065
     Dates: start: 20180923, end: 20180923
  80. ACETAMINOPHEN. [Concomitant]
     Active Substance: ACETAMINOPHEN
     Dosage: 1200 MILLIGRAM
     Route: 065
     Dates: start: 20181002, end: 20181002
  81. ACETAMINOPHEN. [Concomitant]
     Active Substance: ACETAMINOPHEN
     Dosage: 800 MILLIGRAM
     Route: 065
     Dates: start: 20181003, end: 20181003
  82. ACETAMINOPHEN. [Concomitant]
     Active Substance: ACETAMINOPHEN
     Dosage: 400 MILLIGRAM
     Route: 065
     Dates: start: 20181008, end: 20181009
  83. OMEPRAZOLE. [Concomitant]
     Active Substance: OMEPRAZOLE
     Indication: CHRONIC GASTRITIS
     Dosage: 40 MILLIGRAM
     Route: 065
     Dates: start: 20181206

REACTIONS (2)
  - Neutropenic colitis [Recovered/Resolved]
  - Cardiac failure [Recovered/Resolved]

NARRATIVE: CASE EVENT DATE: 20181206
